FAERS Safety Report 21441272 (Version 1)
Quarter: 2022Q4

REPORT INFORMATION
  Report Type: Spontaneous
  Country: US (occurrence: None)
  Receive Date: 20221010
  Receipt Date: 20221010
  Transmission Date: 20230113
  Serious: Yes (Other)
  Sender: FDA-Public Use
  Company Number: None

PATIENT
  Age: 66 Year
  Sex: Male
  Weight: 96.3 kg

DRUGS (14)
  1. REPATHA [Suspect]
     Active Substance: EVOLOCUMAB
     Indication: Blood cholesterol increased
     Dosage: OTHER FREQUENCY : EVERY 2 WEEKS?
     Route: 030
     Dates: start: 20210910, end: 20220517
  2. LISINOPRIL [Concomitant]
     Active Substance: LISINOPRIL
  3. FENOFIBRATE [Concomitant]
     Active Substance: FENOFIBRATE
  4. OMEPRAZOLE [Concomitant]
     Active Substance: OMEPRAZOLE
  5. montelukaste [Concomitant]
  6. ZYRTEC [Concomitant]
     Active Substance: CETIRIZINE HYDROCHLORIDE
  7. FLONASE [Concomitant]
     Active Substance: FLUTICASONE PROPIONATE
  8. GABAPENTIN [Concomitant]
     Active Substance: GABAPENTIN
  9. TAMSULOSIN [Concomitant]
     Active Substance: TAMSULOSIN
  10. metformin er [for PRE-diabetes] [Concomitant]
  11. large dose multi-vitamins and minerals [Concomitant]
  12. COENZYME Q10 [Concomitant]
     Active Substance: DIETARY SUPPLEMENT\UBIDECARENONE
  13. LEVOCARNITINE [Concomitant]
     Active Substance: LEVOCARNITINE
  14. FISH OIL [Concomitant]
     Active Substance: FISH OIL

REACTIONS (3)
  - Myalgia [None]
  - Muscle spasms [None]
  - Pruritus [None]

NARRATIVE: CASE EVENT DATE: 20210705
